FAERS Safety Report 23341751 (Version 2)
Quarter: 2024Q4

REPORT INFORMATION
  Report Type: Report from Study
  Country: CA (occurrence: CA)
  Receive Date: 20231227
  Receipt Date: 20241218
  Transmission Date: 20250114
  Serious: Yes (Other)
  Sender: TAKEDA
  Company Number: CA-TAKEDA-2023TUS122741

PATIENT
  Sex: Male

DRUGS (5)
  1. VEDOLIZUMAB [Suspect]
     Active Substance: VEDOLIZUMAB
     Indication: Crohn^s disease
     Dosage: 300 MILLIGRAM
  2. VEDOLIZUMAB [Suspect]
     Active Substance: VEDOLIZUMAB
     Dosage: 300 MILLIGRAM
  3. B12 [Concomitant]
     Dosage: UNK UNK, MONTHLY
  4. IRON [Concomitant]
     Active Substance: IRON
     Dosage: UNK, QD
  5. VIOLAX [Concomitant]
     Dosage: UNK UNK, BID

REACTIONS (2)
  - Colon cancer metastatic [Recovering/Resolving]
  - B-cell lymphoma [Recovering/Resolving]
